FAERS Safety Report 8561028-3 (Version None)
Quarter: 2012Q3

REPORT INFORMATION
  Report Type: 
  Country: None (occurrence: None)
  Receive Date: 20120802
  Receipt Date: 20110810
  Transmission Date: 20120928
  Serious: No
  Sender: FDA-Public Use
  Company Number: US-BRISTOL-MYERS SQUIBB COMPANY-15962590

PATIENT
  Age: 38 Year
  Sex: Male

DRUGS (3)
  1. EPZICOM [Suspect]
  2. REYATAZ [Suspect]
  3. RITONAVIR [Suspect]

REACTIONS (1)
  - PRURITUS [None]
